FAERS Safety Report 7776785-3 (Version None)
Quarter: 2011Q3

REPORT INFORMATION
  Report Type: 
  Country: None (occurrence: None)
  Receive Date: 20110926
  Receipt Date: 20110913
  Transmission Date: 20111222
  Serious: Yes (Other)
  Sender: FDA-Public Use
  Company Number: US-JNJFOC-20110906199

PATIENT
  Age: 15 Year

DRUGS (1)
  1. REMICADE [Suspect]
     Indication: COLITIS ULCERATIVE
     Dosage: FIRST INDUCTION DOSE
     Route: 042
     Dates: start: 20110901

REACTIONS (1)
  - NEUTROPENIA [None]
